FAERS Safety Report 19934555 (Version 3)
Quarter: 2024Q4

REPORT INFORMATION
  Report Type: Report from Study
  Country: BG (occurrence: BG)
  Receive Date: 20211008
  Receipt Date: 20241014
  Transmission Date: 20250114
  Serious: Yes (Hospitalization)
  Sender: ROCHE
  Company Number: BG-ROCHE-2929171

PATIENT
  Age: 34 Year
  Sex: Female
  Weight: 59.0 kg

DRUGS (2)
  1. OCRELIZUMAB [Suspect]
     Active Substance: OCRELIZUMAB
     Indication: Primary progressive multiple sclerosis
     Dosage: SUBSEQUENT DOSE RECEIVED ON 19-JUN-2020. TOTAL VOLUME PRIOR SAE AND AE 500 ML?ON 23/JUN/2021, SHE RE
     Route: 042
     Dates: start: 20200605
  2. OCRELIZUMAB [Suspect]
     Active Substance: OCRELIZUMAB
     Dosage: SUBSEQUENT DOSES RECEIVED ON 23-JUN-2021, 10-AUG-2022, 13-FEB-2023, 23-AUG-2023, 12-MAR-2024, 13-SEP
     Route: 042
     Dates: start: 20201217, end: 20201217

REACTIONS (1)
  - COVID-19 [Recovered/Resolved]

NARRATIVE: CASE EVENT DATE: 20210913
